FAERS Safety Report 6793508-5 (Version None)
Quarter: 2010Q2

REPORT INFORMATION
  Report Type: 
  Country: None (occurrence: None)
  Receive Date: 20100624
  Receipt Date: 20100420
  Transmission Date: 20101027
  Serious: Yes (Other)
  Sender: FDA-Public Use
  Company Number: US-MYLANLABS-2010S1006972

PATIENT
  Age: 30 Year
  Sex: Male

DRUGS (8)
  1. CLOZAPINE [Suspect]
     Route: 048
     Dates: end: 20100407
  2. CLOZAPINE [Suspect]
     Route: 048
     Dates: end: 20100407
  3. NAVANE [Concomitant]
  4. TOPAMAX [Concomitant]
  5. WELLBUTRIN [Concomitant]
  6. OMEPRAZOLE [Concomitant]
  7. ALBUTEROL [Concomitant]
  8. RANITIDINE [Concomitant]

REACTIONS (1)
  - GRANULOCYTOPENIA [None]
